FAERS Safety Report 20438927 (Version 1)
Quarter: 2022Q1

REPORT INFORMATION
  Report Type: Spontaneous
  Country: US (occurrence: US)
  Receive Date: 20220207
  Receipt Date: 20220207
  Transmission Date: 20220423
  Serious: No
  Sender: FDA-Public Use
  Company Number: US-AMGEN-USASP2022019827

PATIENT
  Age: 35 Year
  Sex: Female

DRUGS (1)
  1. AIMOVIG [Suspect]
     Active Substance: ERENUMAB-AOOE
     Indication: Migraine
     Dosage: 140 MILLIGRAM
     Route: 065

REACTIONS (5)
  - Accidental exposure to product [Unknown]
  - Incorrect dose administered [Unknown]
  - Product storage error [Unknown]
  - Wrong technique in product usage process [Unknown]
  - Illness [Unknown]

NARRATIVE: CASE EVENT DATE: 20211227
